FAERS Safety Report 5635268-7 (Version None)
Quarter: 2008Q1

REPORT INFORMATION
  Report Type: 
  Country: None (occurrence: None)
  Receive Date: 20080222
  Receipt Date: 20080213
  Transmission Date: 20080703
  Serious: Yes (Hospitalization)
  Sender: FDA-Public Use
  Company Number: US-ABBOTT-08P-163-0433140-00

PATIENT
  Age: 43 Year
  Sex: Male

DRUGS (2)
  1. TRICOR [Suspect]
     Indication: HYPERTRIGLYCERIDAEMIA
     Route: 048
     Dates: start: 20070831
  2. TRICOR [Suspect]
     Indication: HYPERCHOLESTEROLAEMIA

REACTIONS (6)
  - ACUTE HEPATIC FAILURE [None]
  - DIARRHOEA [None]
  - HEPATIC STEATOSIS [None]
  - HYPERCHOLESTEROLAEMIA [None]
  - LIVER DISORDER [None]
  - WEIGHT DECREASED [None]
